FAERS Safety Report 19509324 (Version 1)
Quarter: 2021Q3

REPORT INFORMATION
  Report Type: Spontaneous
  Country: US (occurrence: US)
  Receive Date: 20210709
  Receipt Date: 20210709
  Transmission Date: 20211014
  Serious: No
  Sender: FDA-Public Use
  Company Number: US-PRINSTON PHARMACEUTICAL INC.-2021PRN00037

PATIENT
  Sex: Female

DRUGS (3)
  1. BUPROPION HYDROCHLORIDE. [Suspect]
     Active Substance: BUPROPION HYDROCHLORIDE
  2. UNSPECIFIED MEDICATION #2 [Suspect]
     Active Substance: UNSPECIFIED INGREDIENT
  3. UNSPECIFIED MEDICATION #1 [Suspect]
     Active Substance: UNSPECIFIED INGREDIENT

REACTIONS (3)
  - Pruritus [Unknown]
  - Skin reaction [Unknown]
  - Reaction to excipient [Unknown]
